FAERS Safety Report 7253572-6 (Version None)
Quarter: 2011Q1

REPORT INFORMATION
  Report Type: 
  Country: None (occurrence: None)
  Receive Date: 20110129
  Receipt Date: 20100330
  Transmission Date: 20110831
  Serious: No
  Sender: FDA-Public Use
  Company Number: US-ABBOTT-10P-163-0635896-00

PATIENT
  Sex: Female

DRUGS (9)
  1. NEBUMATOME [Concomitant]
  2. ASPIRIN [Concomitant]
  3. MULTIVITAMIN [Concomitant]
  4. HUMIRA [Suspect]
     Indication: RHEUMATOID ARTHRITIS
     Dates: start: 20100326
  5. PREDNISONE [Concomitant]
  6. FOLIC ACID [Concomitant]
  7. TRICOR [Concomitant]
  8. LOVAZA [Concomitant]
  9. TRAMADOL HCL [Concomitant]

REACTIONS (3)
  - HYPERSENSITIVITY [None]
  - INJECTION SITE HAEMATOMA [None]
  - NASOPHARYNGITIS [None]
